FAERS Safety Report 6971264-5 (Version None)
Quarter: 2010Q3

REPORT INFORMATION
  Report Type: 
  Country: None (occurrence: None)
  Receive Date: 20100908
  Receipt Date: 20100902
  Transmission Date: 20110219
  Serious: Yes (Other)
  Sender: FDA-Public Use
  Company Number: SE-BRISTOL-MYERS SQUIBB COMPANY-15270135

PATIENT
  Age: 35 Year
  Sex: Male

DRUGS (2)
  1. ORENCIA [Suspect]
     Indication: PSORIATIC ARTHROPATHY
     Dosage: TOTAL INF:5;INF26FEB,11MAR,25MAR,MAY2010,08JUL2010 RECHALLENGED:15JUN2010 AND 08JUL2010
     Dates: start: 20100226
  2. METHOTREXATE [Suspect]
     Dates: start: 20030101

REACTIONS (3)
  - ABDOMINAL PAIN [None]
  - FATIGUE [None]
  - TRANSAMINASES INCREASED [None]
